FAERS Safety Report 4963414-7 (Version None)
Quarter: 2006Q2

REPORT INFORMATION
  Report Type: 
  Country: None (occurrence: None)
  Receive Date: 20060405
  Receipt Date: 20060307
  Transmission Date: 20061013
  Serious: Yes (Hospitalization)
  Sender: FDA-Public Use
  Company Number: JP-NOVOPROD-251415

PATIENT
  Age: 78 Year
  Sex: Male
  Weight: 55 kg

DRUGS (5)
  1. NOVOSEVEN [Suspect]
     Indication: CEREBRAL HAEMORRHAGE
     Dosage: 40 UG/KG, UNK
     Route: 042
     Dates: start: 20060220, end: 20060220
  2. FAMOTIDINE [Concomitant]
     Indication: PROPHYLAXIS
     Dosage: 40 MG, QD
     Dates: start: 20060221
  3. FUROSEMIDE [Concomitant]
     Indication: PLEURAL EFFUSION
     Dosage: 10 MG, QD
     Dates: start: 20060227
  4. ENTERONON R [Concomitant]
     Indication: DIARRHOEA
     Dosage: 3 G, QD
     Dates: start: 20060302
  5. SOLDEM 1 [Concomitant]
     Dosage: 960 ML, QD
     Dates: start: 20060303

REACTIONS (7)
  - BLOOD PRESSURE SYSTOLIC INCREASED [None]
  - HEART RATE INCREASED [None]
  - PLEURAL EFFUSION [None]
  - PLEURISY [None]
  - PNEUMONIA [None]
  - PNEUMONIA ASPIRATION [None]
  - PYOTHORAX [None]
